FAERS Safety Report 11877249 (Version 4)
Quarter: 2016Q2

REPORT INFORMATION
  Report Type: Report from Study
  Country: US (occurrence: US)
  Receive Date: 20151229
  Receipt Date: 20160427
  Transmission Date: 20160815
  Serious: Yes (Hospitalization)
  Sender: FDA-Public Use
  Company Number: US-ACTELION-A-NJ2015-124275

PATIENT
  Age: 34 Year
  Sex: Female

DRUGS (5)
  1. VELETRI [Suspect]
     Active Substance: EPOPROSTENOL
     Indication: PULMONARY ARTERIAL HYPERTENSION
     Dosage: 5 NG/KG, PER MIN
     Route: 042
  2. TRACLEER [Suspect]
     Active Substance: BOSENTAN
     Indication: PULMONARY ARTERIAL HYPERTENSION
     Dosage: UNK
     Route: 048
  3. AMLODIPINE [Concomitant]
     Active Substance: AMLODIPINE BESYLATE
  4. VELETRI [Suspect]
     Active Substance: EPOPROSTENOL
     Dosage: 6 NG/KG, PER MIN
     Route: 042
  5. SILDENAFIL. [Concomitant]
     Active Substance: SILDENAFIL

REACTIONS (24)
  - Condition aggravated [Unknown]
  - Musculoskeletal pain [Unknown]
  - Pain in extremity [Unknown]
  - Catheter site erythema [Unknown]
  - Catheter placement [Unknown]
  - Nausea [Unknown]
  - Musculoskeletal stiffness [Unknown]
  - Catheter site pain [Unknown]
  - Device dislocation [Unknown]
  - Pain in jaw [Unknown]
  - Wheezing [Recovering/Resolving]
  - Parosmia [Recovering/Resolving]
  - Hypoaesthesia [Unknown]
  - Vision blurred [Unknown]
  - Headache [Unknown]
  - Catheter site haemorrhage [Unknown]
  - Cough [Unknown]
  - Pleural effusion [Unknown]
  - Flushing [Unknown]
  - Diarrhoea [Unknown]
  - Upper respiratory tract infection [Unknown]
  - Productive cough [Unknown]
  - Catheter site rash [Unknown]
  - Product quality issue [Unknown]
